FAERS Safety Report 6133317-3 (Version None)
Quarter: 2009Q1

REPORT INFORMATION
  Report Type: 
  Country: None (occurrence: None)
  Receive Date: 20090324
  Receipt Date: 20090324
  Transmission Date: 20090719
  Serious: No
  Sender: FDA-Public Use
  Company Number: None

PATIENT
  Age: 60 Year
  Sex: Male
  Weight: 79 kg

DRUGS (1)
  1. DICLOXACILLIN [Suspect]
     Indication: CELLULITIS
     Dosage: 250 MG QID PO
     Route: 048
     Dates: start: 20090216, end: 20090225

REACTIONS (3)
  - RASH GENERALISED [None]
  - RASH PRURITIC [None]
  - TREATMENT NONCOMPLIANCE [None]
